FAERS Safety Report 17370509 (Version 1)
Quarter: 2020Q1

REPORT INFORMATION
  Report Type: Spontaneous
  Country: US (occurrence: US)
  Receive Date: 20200205
  Receipt Date: 20200205
  Transmission Date: 20200409
  Serious: Yes (Hospitalization)
  Sender: FDA-Public Use
  Company Number: US-ABBVIE-20K-163-3258451-00

PATIENT
  Age: 75 Year
  Sex: Female
  Weight: 61.74 kg

DRUGS (4)
  1. VANCOMYCIN [Suspect]
     Active Substance: VANCOMYCIN
     Indication: COUGH
  2. SYNTHROID [Suspect]
     Active Substance: LEVOTHYROXINE SODIUM
     Route: 048
     Dates: start: 20200115
  3. VANCOMYCIN [Suspect]
     Active Substance: VANCOMYCIN
     Indication: ENDOCARDITIS
     Route: 041
  4. SYNTHROID [Suspect]
     Active Substance: LEVOTHYROXINE SODIUM
     Indication: THYROIDECTOMY
     Dosage: ONE TABLET SIX DAYS A WEEK AND A HALF OR QUARTER TABLET ON SUNDAYS
     Route: 048
     Dates: start: 1995

REACTIONS (11)
  - Arthralgia [Recovered/Resolved]
  - Dental care [Unknown]
  - Endocarditis [Recovered/Resolved]
  - Cough [Recovered/Resolved]
  - Product use complaint [Recovered/Resolved]
  - Cough [Recovered/Resolved]
  - Osteomyelitis [Recovered/Resolved]
  - Endocarditis [Recovered/Resolved]
  - Endocarditis [Recovered/Resolved]
  - Cough [Recovered/Resolved]
  - Red man syndrome [Unknown]

NARRATIVE: CASE EVENT DATE: 1999
